FAERS Safety Report 13840499 (Version 2)
Quarter: 2017Q3

REPORT INFORMATION
  Report Type: Spontaneous
  Country: FR (occurrence: FR)
  Receive Date: 20170807
  Receipt Date: 20170809
  Transmission Date: 20171127
  Serious: Yes (Hospitalization, Other)
  Sender: FDA-Public Use
  Company Number: FR-PFIZER INC-2017331299

PATIENT
  Age: 60 Year
  Sex: Male

DRUGS (9)
  1. FLUOROURACILE PFIZER [Suspect]
     Active Substance: FLUOROURACIL
     Dosage: UNK, CYCLIC
     Route: 042
     Dates: start: 20170622
  2. FOLINIC ACID [Concomitant]
     Active Substance: LEUCOVORIN
     Dosage: UNK
     Dates: start: 20170608
  3. FLUOROURACILE PFIZER [Suspect]
     Active Substance: FLUOROURACIL
     Indication: OESOPHAGEAL ADENOCARCINOMA
     Dosage: UNK, CYCLIC
     Route: 042
     Dates: start: 20170608
  4. SPIRIVA [Concomitant]
     Active Substance: TIOTROPIUM BROMIDE MONOHYDRATE
     Dosage: UNK
     Route: 055
  5. IRINOTECAN HCL [Suspect]
     Active Substance: IRINOTECAN HYDROCHLORIDE
     Indication: OESOPHAGEAL ADENOCARCINOMA
     Dosage: UNK, CYCLIC
     Route: 042
     Dates: start: 20170608
  6. IRINOTECAN HCL [Suspect]
     Active Substance: IRINOTECAN HYDROCHLORIDE
     Dosage: UNK, CYCLIC
     Route: 042
     Dates: start: 20170622
  7. INEXIUM [Suspect]
     Active Substance: ESOMEPRAZOLE
     Dosage: UNK
     Route: 048
     Dates: start: 2015, end: 20170712
  8. DIFFU K [Concomitant]
     Active Substance: POTASSIUM CHLORIDE
     Dosage: UNK
     Route: 048
  9. EPOETIN ALFA [Concomitant]
     Active Substance: ERYTHROPOIETIN
     Dosage: UNK
     Dates: start: 20170608

REACTIONS (3)
  - Pancytopenia [Recovered/Resolved]
  - Second primary malignancy [Unknown]
  - Myelodysplastic syndrome [Unknown]

NARRATIVE: CASE EVENT DATE: 20170704
